FAERS Safety Report 4347791-6 (Version None)
Quarter: 2004Q2

REPORT INFORMATION
  Report Type: 
  Country: None (occurrence: None)
  Receive Date: 20040427
  Receipt Date: 20040421
  Transmission Date: 20050107
  Serious: Yes (Death, Hospitalization, Other)
  Sender: FDA-Public Use
  Company Number: 200413085US

PATIENT
  Sex: Male

DRUGS (27)
  1. ARAVA [Suspect]
     Indication: RHEUMATOID ARTHRITIS
     Route: 048
     Dates: start: 19990101, end: 20010131
  2. LAC-HYDRIN [Concomitant]
     Dosage: DOSE: 12%
  3. ATENOLOL [Concomitant]
  4. MICRO-K [Concomitant]
  5. PREDNISONE [Concomitant]
     Dosage: DOSE: 1-20
  6. FOLIC ACID [Concomitant]
  7. HUMULIN N [Concomitant]
     Dosage: DOSE: NOT PROVIDED
  8. ACETAMINOPHEN AND HYDROCODONE BITARTRATE [Concomitant]
     Dosage: DOSE: 5/500
  9. DOXAZOSIN MESYLATE [Concomitant]
  10. HYDROXYZINE [Concomitant]
  11. TRIAMCINOLONE [Concomitant]
     Dosage: DOSE: 0.1%
     Route: 061
  12. PRILOSEC [Concomitant]
  13. ACTOS [Concomitant]
  14. LANOXIN [Concomitant]
  15. HUMULIN R [Concomitant]
     Dosage: DOSE: NOT PROVIDED
  16. HYDROXYCHLOROQUINE SULFATE [Concomitant]
  17. METROGEL [Concomitant]
     Dosage: DOSE: 0.75%
     Route: 061
  18. ISOSORBIDE MONONITRATE [Concomitant]
  19. DESOXIMETASONE [Concomitant]
     Dosage: DOSE: 0.25%
     Route: 061
  20. LODINE XL [Concomitant]
  21. TRAZODONE HCL [Concomitant]
  22. ACETAMINOPHEN W/PROPOXYPHENE [Concomitant]
     Dosage: DOSE: 100/650
  23. ZYRTEC [Concomitant]
  24. FUROSEMIDE [Concomitant]
  25. NAVANE [Concomitant]
  26. LORAZEPAM [Concomitant]
  27. METHOTREXATE [Concomitant]
     Dosage: DOSE: NOT PROVIDED

REACTIONS (25)
  - BLOOD ALKALINE PHOSPHATASE INCREASED [None]
  - CANDIDIASIS [None]
  - CELLULITIS [None]
  - COLLAGEN DISORDER [None]
  - CORONARY ARTERY DISEASE [None]
  - COUGH [None]
  - DEHYDRATION [None]
  - DIABETES MELLITUS [None]
  - FEBRILE NEUTROPENIA [None]
  - HODGKIN'S DISEASE [None]
  - HYPERHIDROSIS [None]
  - HYPOTENSION [None]
  - LUNG NEOPLASM [None]
  - LYMPHADENOPATHY [None]
  - MICROCYTIC ANAEMIA [None]
  - MYELODYSPLASTIC SYNDROME [None]
  - NAUSEA [None]
  - PANCYTOPENIA [None]
  - PERIPORTAL SINUS DILATATION [None]
  - PERIRECTAL ABSCESS [None]
  - PNEUMONITIS [None]
  - PRURITUS [None]
  - RASH PRURITIC [None]
  - URTICARIA [None]
  - WHITE BLOOD CELL COUNT DECREASED [None]
